FAERS Safety Report 23304525 (Version 1)
Quarter: 2023Q4

REPORT INFORMATION
  Report Type: Report from Study
  Country: IT (occurrence: IT)
  Receive Date: 20231218
  Receipt Date: 20231218
  Transmission Date: 20240110
  Serious: Yes (Other)
  Sender: FDA-Public Use
  Company Number: None

PATIENT
  Age: 8 Year
  Weight: 22 kg

DRUGS (5)
  1. VINCRISTINE [Suspect]
     Active Substance: VINCRISTINE
     Indication: B-cell type acute leukaemia
     Dosage: 2 MG/DAY ON 23, 31/10, 07/11/2023
     Route: 042
     Dates: start: 20231023, end: 20231107
  2. ESOMEPRAZOLE [Concomitant]
     Active Substance: ESOMEPRAZOLE
     Indication: Prophylaxis against gastrointestinal ulcer
     Dosage: 10 MG/DAY
     Route: 048
     Dates: start: 20231024
  3. ONCASPAR [Suspect]
     Active Substance: PEGASPARGASE
     Indication: B-cell type acute leukaemia
     Dosage: 2190 U/I/DAY
     Route: 042
     Dates: start: 20231027, end: 20231027
  4. DAUNORUBICIN HYDROCHLORIDE [Suspect]
     Active Substance: DAUNORUBICIN HYDROCHLORIDE
     Indication: B-cell type acute leukaemia
     Dosage: 29.30 MG/DAY ON 23, 31/10, 07/11/2023
     Route: 042
     Dates: start: 20231023, end: 20231107
  5. PREDNISONE [Concomitant]
     Active Substance: PREDNISONE
     Indication: B-cell type acute leukaemia
     Dosage: 17.5 MG X 3 TIMES/DAY FROM DAY 23/10 TO DAY 12/11/2023?8.75 MG/DAY FROM DAY 13/11 TO DAY 15/11/2023
     Route: 048
     Dates: start: 20231023

REACTIONS (7)
  - Neutropenia [Not Recovered/Not Resolved]
  - Alopecia [Not Recovered/Not Resolved]
  - Diarrhoea [Recovered/Resolved]
  - Constipation [Recovering/Resolving]
  - Pain in extremity [Recovered/Resolved]
  - Stomatitis [Recovered/Resolved]
  - Leukopenia [Recovered/Resolved]

NARRATIVE: CASE EVENT DATE: 20231013
